FAERS Safety Report 17014909 (Version 1)
Quarter: 2019Q4

REPORT INFORMATION
  Report Type: Spontaneous
  Country: GB (occurrence: GB)
  Receive Date: 20191111
  Receipt Date: 20191111
  Transmission Date: 20200122
  Serious: Yes (Other)
  Sender: FDA-Public Use
  Company Number: GB-TEVA-2019-GB-1115465

PATIENT
  Age: 71 Year
  Sex: Female
  Weight: 73 kg

DRUGS (4)
  1. EDOXABAN [Concomitant]
     Active Substance: EDOXABAN TOSYLATE
     Indication: ATRIAL FIBRILLATION
     Dosage: 60 MILLIGRAM DAILY;
     Route: 048
     Dates: start: 20190819
  2. AMLODIPINE [Suspect]
     Active Substance: AMLODIPINE BESYLATE
     Indication: BLOOD PRESSURE ABNORMAL
     Dosage: 5 MILLIGRAM DAILY;
     Dates: start: 20170909, end: 20190910
  3. PROCHLORPERAZINE. [Concomitant]
     Active Substance: PROCHLORPERAZINE
     Indication: DIZZINESS
     Dosage: 9 MILLIGRAM DAILY;
     Route: 048
     Dates: end: 20190309
  4. BISOPROLOL [Concomitant]
     Active Substance: BISOPROLOL
     Indication: PALPITATIONS
     Dosage: 1.25 MILLIGRAM DAILY;
     Route: 048
     Dates: start: 20190819

REACTIONS (15)
  - Taste disorder [Unknown]
  - Nausea [Unknown]
  - Dizziness [Recovering/Resolving]
  - Abdominal distension [Recovered/Resolved]
  - Decreased appetite [Recovered/Resolved]
  - Heart rate increased [Unknown]
  - Tinnitus [Recovered/Resolved]
  - Contusion [Unknown]
  - Atrial fibrillation [Unknown]
  - Arrhythmia [Unknown]
  - Muscle spasms [Unknown]
  - Hot flush [Unknown]
  - Adverse event [Unknown]
  - Palpitations [Unknown]
  - Dyspnoea [Recovering/Resolving]

NARRATIVE: CASE EVENT DATE: 20190701
